FAERS Safety Report 7740591-6 (Version None)
Quarter: 2011Q3

REPORT INFORMATION
  Report Type: 
  Country: None (occurrence: None)
  Receive Date: 20110909
  Receipt Date: 20110829
  Transmission Date: 20111222
  Serious: Yes (Hospitalization)
  Sender: FDA-Public Use
  Company Number: US-BAYER-2011-027768

PATIENT
  Age: 24 Year
  Sex: Female
  Weight: 84.354 kg

DRUGS (3)
  1. ALBUTEROL SULFATE AUTOHALER [Concomitant]
     Dosage: UNK
     Dates: start: 20100225
  2. IBUPROFEN [Concomitant]
  3. DROSPIRENONE AND ETHINYL ESTRADIOL [Suspect]
     Indication: ACNE
     Dosage: UNK
     Dates: start: 20100218, end: 20100304

REACTIONS (12)
  - ANHEDONIA [None]
  - EMOTIONAL DISTRESS [None]
  - MOBILITY DECREASED [None]
  - GENERAL PHYSICAL HEALTH DETERIORATION [None]
  - PAIN [None]
  - PRESYNCOPE [None]
  - DYSPNOEA [None]
  - PULMONARY EMBOLISM [None]
  - INSOMNIA [None]
  - URINARY RETENTION [None]
  - ANXIETY [None]
  - INJURY [None]
